FAERS Safety Report 8222116-4 (Version None)
Quarter: 2012Q1

REPORT INFORMATION
  Report Type: 
  Country: None (occurrence: None)
  Receive Date: 20120320
  Receipt Date: 20120309
  Transmission Date: 20120608
  Serious: Yes (Disabling, Other)
  Sender: FDA-Public Use
  Company Number: US-MERCK-1202USA01735

PATIENT
  Age: 59 Year
  Sex: Male
  Weight: 94 kg

DRUGS (5)
  1. TEKTURNA [Suspect]
     Indication: HYPERTENSION
     Route: 048
     Dates: start: 20080101, end: 20120124
  2. LOTREL [Concomitant]
     Route: 065
  3. DOXAZOSIN MESYLATE [Concomitant]
     Indication: HYPERTENSION
     Route: 048
     Dates: start: 20110601
  4. COZAAR [Suspect]
     Indication: HYPERTENSION
     Route: 048
     Dates: start: 20080101
  5. BENAZEPRIL HYDROCHLORIDE [Suspect]
     Indication: HYPERTENSION
     Route: 048
     Dates: start: 20080101

REACTIONS (6)
  - BLINDNESS UNILATERAL [None]
  - TYPE 2 DIABETES MELLITUS [None]
  - DRUG INTERACTION [None]
  - DIABETES MELLITUS INADEQUATE CONTROL [None]
  - OPTIC ISCHAEMIC NEUROPATHY [None]
  - HYPERTENSION [None]
